FAERS Safety Report 9500581 (Version 1)
Quarter: 2013Q3

REPORT INFORMATION
  Report Type: Spontaneous
  Country: US (occurrence: None)
  Receive Date: 20130903
  Receipt Date: 20130903
  Transmission Date: 20140515
  Serious: Yes (Death, Hospitalization)
  Sender: FDA-Public Use
  Company Number: SYM-2013-10119

PATIENT
  Age: 56 Year
  Sex: Male

DRUGS (10)
  1. FLUOROURACIL (FLUOROURACIL) (FLUOROURACIL) [Suspect]
     Indication: SQUAMOUS CELL CARCINOMA
  2. CISPLATIN (CISPLATIN) (CISPLATIN) [Suspect]
     Indication: SQUAMOUS CELL CARCINOMA
  3. HYDRALAZINE (HYDRALAZINE) (HYDRALAZINE) [Concomitant]
  4. FUROSEMIDE [Concomitant]
  5. LEVOTHYROXINE (LEVOTHYROXINE) (LEVOTHYROXINE) [Concomitant]
  6. LISINOPRIL (LISINOPRIL) (LISINOPRIL) [Concomitant]
  7. HYDROCHLOROTHIAZIDE (HYDROCHLOROTHIAZIDE) (HYDROCHLOROTHIAZIDE) [Concomitant]
  8. METOPROLOL (METOPROLOL) (METOPROLOL) [Concomitant]
  9. ATORVASTATIN (ATORVASTATIN) (ATORVASTATIN) [Concomitant]
  10. AMIODRARONE (AMIODARONE) (AMIODARONE) [Concomitant]

REACTIONS (9)
  - Acute respiratory distress syndrome [None]
  - Shock [None]
  - Histiocytosis haematophagic [None]
  - Multi-organ failure [None]
  - Metabolic acidosis [None]
  - Lactic acidosis [None]
  - Splenomegaly [None]
  - Hypotension [None]
  - Leukopenia [None]
